FAERS Safety Report 4400768-4 (Version None)
Quarter: 2004Q3

REPORT INFORMATION
  Report Type: 
  Country: None (occurrence: None)
  Receive Date: 20040907
  Receipt Date: 20030516
  Transmission Date: 20050211
  Serious: No
  Sender: FDA-Public Use
  Company Number: US-BRISTOL-MYERS SQUIBB COMPANY-12278123

PATIENT
  Age: 76 Year
  Sex: Female

DRUGS (8)
  1. COUMADIN [Suspect]
     Indication: CARDIAC PACEMAKER INSERTION
     Dosage: 23-OCT-2004 DOSE 6MG/DAY.
     Route: 048
     Dates: start: 20001001
  2. FOSAMAX [Concomitant]
  3. LIPITOR [Concomitant]
  4. EVISTA [Concomitant]
  5. LASIX [Concomitant]
  6. ALTACE [Concomitant]
  7. ALDACTONE [Concomitant]
  8. COREG [Concomitant]

REACTIONS (1)
  - INTERNATIONAL NORMALISED RATIO ABNORMAL [None]
